FAERS Safety Report 15633984 (Version 1)
Quarter: 2018Q4

REPORT INFORMATION
  Report Type: Spontaneous
  Country: US (occurrence: US)
  Receive Date: 20181119
  Receipt Date: 20181119
  Transmission Date: 20190205
  Serious: No
  Sender: FDA-Public Use
  Company Number: US-SA-2018SA315790

PATIENT
  Sex: Female

DRUGS (2)
  1. GOLD BOND ULTIMATE ROUGH + BUMPY SKIN CREAM [Suspect]
     Active Substance: COSMETICS
  2. GOLD BOND (DIMETICONE) [Suspect]
     Active Substance: DIMETHICONE

REACTIONS (4)
  - Sinusitis [Unknown]
  - Malaise [Unknown]
  - Unevaluable event [Unknown]
  - Rash [Unknown]

NARRATIVE: CASE EVENT DATE: 2018
